FAERS Safety Report 7910272-4 (Version None)
Quarter: 2011Q4

REPORT INFORMATION
  Report Type: 
  Country: None (occurrence: None)
  Receive Date: 20111111
  Receipt Date: 20111027
  Transmission Date: 20120403
  Serious: Yes (Other)
  Sender: FDA-Public Use
  Company Number: GB-ROCHE-GNE321074

PATIENT
  Sex: Female
  Weight: 103.1 kg

DRUGS (7)
  1. MONTELUKAST SODIUM [Suspect]
     Indication: PRODUCT USED FOR UNKNOWN INDICATION
     Dosage: 10 MG, UNK
     Route: 048
     Dates: start: 20070101
  2. ALBUTEROL SULFATE AUTOHALER [Concomitant]
     Indication: PRODUCT USED FOR UNKNOWN INDICATION
  3. ATROVENT [Concomitant]
     Indication: PRODUCT USED FOR UNKNOWN INDICATION
  4. XOLAIR [Suspect]
     Indication: ASTHMA
     Dosage: 300 MG, Q4W
     Route: 058
     Dates: start: 20091104, end: 20110504
  5. IPRATROPIUM BROMIDE [Suspect]
     Indication: ASTHMA
     Dosage: UNK UNK, UNKNOWN
     Route: 055
  6. FLUTICASONE PROPIONATE/SALMETEROL [Suspect]
     Indication: ASTHMA
     Dosage: UNK UNK, UNKNOWN
     Route: 055
     Dates: start: 20050101
  7. CITALOPRAM HYDROBROMIDE [Concomitant]
     Indication: PRODUCT USED FOR UNKNOWN INDICATION

REACTIONS (1)
  - TRANSIENT ISCHAEMIC ATTACK [None]
